FAERS Safety Report 17220802 (Version 1)
Quarter: 2019Q4

REPORT INFORMATION
  Report Type: Spontaneous
  Country: BR (occurrence: BR)
  Receive Date: 20191231
  Receipt Date: 20191231
  Transmission Date: 20200122
  Serious: Yes (Life-Threatening, Hospitalization, Other)
  Sender: FDA-Public Use
  Company Number: BR-PFIZER INC-2019558951

PATIENT
  Age: 34 Year
  Sex: Male

DRUGS (2)
  1. LINEZOLID. [Suspect]
     Active Substance: LINEZOLID
     Indication: RENAL CYST INFECTION
     Dosage: 600 MG, 2X/DAY
     Route: 042
  2. MEROPENEM. [Suspect]
     Active Substance: MEROPENEM
     Indication: RENAL CYST INFECTION
     Dosage: 1 G TID

REACTIONS (6)
  - Pneumoperitoneum [Recovered/Resolved]
  - Renal cyst infection [Recovered/Resolved]
  - Intestinal obstruction [Recovered/Resolved]
  - Condition aggravated [Recovered/Resolved]
  - Kidney enlargement [Recovered/Resolved]
  - Candida infection [Recovered/Resolved]
